FAERS Safety Report 15228572 (Version 2)
Quarter: 2019Q1

REPORT INFORMATION
  Report Type: Spontaneous
  Country: US (occurrence: US)
  Receive Date: 20180801
  Receipt Date: 20190206
  Transmission Date: 20190417
  Serious: No
  Sender: FDA-Public Use
  Company Number: US-SA-2018SA205863

PATIENT
  Age: 27 Year
  Sex: Male

DRUGS (6)
  1. AZITHROMYCIN ANHYDROUS. [Concomitant]
     Active Substance: AZITHROMYCIN ANHYDROUS
     Dosage: 250 MG
  2. BENZONATATE. [Concomitant]
     Active Substance: BENZONATATE
     Dosage: 200 MG
  3. DUPIXENT [Suspect]
     Active Substance: DUPILUMAB
     Indication: DERMATITIS ATOPIC
     Dosage: 600 MG, 1X
     Route: 058
     Dates: start: 201806
  4. BROMPHENIRAMINE [Concomitant]
     Active Substance: BROMPHENIRAMINE
  5. CETAPHIL ANTIBACTERIAL [Concomitant]
  6. HALOBETASOL PROPIONATE. [Concomitant]
     Active Substance: HALOBETASOL PROPIONATE

REACTIONS (2)
  - Lacrimation increased [Unknown]
  - Eye pruritus [Recovered/Resolved]
